FAERS Safety Report 19967065 (Version 1)
Quarter: 2021Q4

REPORT INFORMATION
  Report Type: Spontaneous
  Country: RO (occurrence: RO)
  Receive Date: 20211019
  Receipt Date: 20211019
  Transmission Date: 20220303
  Serious: Yes (Hospitalization)
  Sender: FDA-Public Use
  Company Number: RO-EMA-DD-20210929-KAUR_J6-183459

PATIENT
  Sex: Male

DRUGS (1)
  1. IBUPROFEN [Suspect]
     Active Substance: IBUPROFEN
     Indication: Procedural pain
     Dosage: 400 MG, BID. THE TREATMENT WERE PRESCRIBED FOR 12 DAYS
     Route: 065

REACTIONS (2)
  - Drug ineffective [Unknown]
  - Dehydration [Unknown]
